FAERS Safety Report 20755058 (Version 1)
Quarter: 2022Q2

REPORT INFORMATION
  Report Type: Spontaneous
  Country: CN (occurrence: CN)
  Receive Date: 20220427
  Receipt Date: 20220427
  Transmission Date: 20220721
  Serious: Yes (Hospitalization)
  Sender: FDA-Public Use
  Company Number: CN-NOVARTISPH-NVSC2022CN095672

PATIENT
  Age: 71 Year
  Sex: Female
  Weight: 50 kg

DRUGS (4)
  1. PARLODEL [Suspect]
     Active Substance: BROMOCRIPTINE MESYLATE
     Indication: Brain herniation
     Dosage: 1.25 MG, BID
     Route: 048
     Dates: start: 20220107, end: 20220109
  2. BENSERAZIDE HYDROCHLORIDE\LEVODOPA [Suspect]
     Active Substance: BENSERAZIDE HYDROCHLORIDE\LEVODOPA
     Indication: Brain herniation
     Dosage: 0.125 G, TID
     Route: 048
     Dates: start: 20220107, end: 20220209
  3. FLUNARIZINE HYDROCHLORIDE [Suspect]
     Active Substance: FLUNARIZINE HYDROCHLORIDE
     Indication: Brain herniation
     Dosage: 5 MG, QD
     Route: 048
     Dates: start: 20220107, end: 20220109
  4. AMLODIPINE BESYLATE [Concomitant]
     Active Substance: AMLODIPINE BESYLATE
     Indication: Hypertension
     Dosage: 5 MG, QD
     Route: 065
     Dates: start: 20211218, end: 20220109

REACTIONS (1)
  - Hypotension [Recovering/Resolving]

NARRATIVE: CASE EVENT DATE: 20220109
